FAERS Safety Report 13697484 (Version 1)
Quarter: 2017Q2

REPORT INFORMATION
  Report Type: Spontaneous
  Country: US (occurrence: US)
  Receive Date: 20170628
  Receipt Date: 20170628
  Transmission Date: 20170830
  Serious: No
  Sender: FDA-Public Use
  Company Number: US-GLAXOSMITHKLINE-US2017099326

PATIENT
  Age: 60 Year
  Sex: Male

DRUGS (1)
  1. ALLI [Suspect]
     Active Substance: ORLISTAT
     Indication: WEIGHT LOSS DIET
     Dosage: UNK
     Dates: start: 20170315

REACTIONS (2)
  - Change of bowel habit [Recovered/Resolved]
  - Steatorrhoea [Recovered/Resolved]

NARRATIVE: CASE EVENT DATE: 20170315
